FAERS Safety Report 4325031-1 (Version None)
Quarter: 2004Q1

REPORT INFORMATION
  Report Type: 
  Country: None (occurrence: None)
  Receive Date: 20040326
  Receipt Date: 20040326
  Transmission Date: 20041129
  Serious: Yes (Hospitalization)
  Sender: FDA-Public Use
  Company Number: None

PATIENT
  Age: 49 Year
  Sex: Female
  Weight: 87.9978 kg

DRUGS (2)
  1. DAUNORUBICIN HCL [Suspect]
     Indication: ACUTE PROMYELOCYTIC LEUKAEMIA
     Dosage: 112 MG QD X 3 DAY IV
     Route: 042
     Dates: start: 20040210, end: 20040212
  2. TRETINOIN [Concomitant]

REACTIONS (1)
  - RECALL PHENOMENON [None]
